FAERS Safety Report 7319626-0 (Version None)
Quarter: 2011Q1

REPORT INFORMATION
  Report Type: 
  Country: None (occurrence: None)
  Receive Date: 20110228
  Receipt Date: 20100806
  Transmission Date: 20110831
  Serious: No
  Sender: FDA-Public Use
  Company Number: A0866085A

PATIENT
  Age: 37 Year
  Sex: Female
  Weight: 121.3 kg

DRUGS (6)
  1. GAS X [Concomitant]
  2. RISPERDAL [Concomitant]
     Route: 065
  3. LAMICTAL [Suspect]
     Dosage: 25MG AT NIGHT
     Route: 048
     Dates: start: 20100608, end: 20100611
  4. TYLENOL W/ CODEINE [Concomitant]
  5. HERPES SIMPLEX MEDICATION [Concomitant]
     Indication: IMMUNOSUPPRESSANT DRUG THERAPY
  6. LAMOTRIGINE [Suspect]
     Route: 065
     Dates: start: 20100612

REACTIONS (5)
  - PYREXIA [None]
  - RASH [None]
  - INFLUENZA LIKE ILLNESS [None]
  - OROPHARYNGEAL PAIN [None]
  - PAIN [None]
